FAERS Safety Report 8233718-3 (Version None)
Quarter: 2012Q1

REPORT INFORMATION
  Report Type: 
  Country: None (occurrence: None)
  Receive Date: 20120323
  Receipt Date: 20120323
  Transmission Date: 20120608
  Serious: Yes (Other)
  Sender: FDA-Public Use
  Company Number: None

PATIENT
  Sex: Female
  Weight: 157.5 kg

DRUGS (1)
  1. NORVASC [Suspect]
     Indication: HYPERTENSION
     Dosage: 5MG 1 DAILY BY MOUTH
     Route: 048

REACTIONS (2)
  - FLATULENCE [None]
  - ABDOMINAL PAIN UPPER [None]
